FAERS Safety Report 6507227-3 (Version None)
Quarter: 2009Q4

REPORT INFORMATION
  Report Type: 
  Country: None (occurrence: None)
  Receive Date: 20091221
  Receipt Date: 20091211
  Transmission Date: 20100525
  Serious: Yes (Other)
  Sender: FDA-Public Use
  Company Number: PHHY2009BE55104

PATIENT
  Sex: Male

DRUGS (9)
  1. RASILEZ [Suspect]
     Indication: PROTEINURIA
     Dosage: 150 MG PER DAY
     Route: 048
     Dates: start: 20090319
  2. RASILEZ [Suspect]
     Dosage: 300 MG PER DAY
     Route: 048
  3. RASILEZ [Suspect]
     Dosage: 300 MG, EVERY TEN DAYS
     Route: 048
  4. LISINOPRIL [Concomitant]
     Dosage: 20 MG, UNK
  5. BIO-FER [Concomitant]
  6. ALPHA ^LEO^ [Concomitant]
     Dosage: 1 MCG PER DAY
  7. BICARBONATE [Concomitant]
     Dosage: 5 - 6 G
  8. BIOMAGNESIUM [Concomitant]
  9. CALCIUM POLYSTYRENE SULFONATE [Concomitant]

REACTIONS (2)
  - DRUG PRESCRIBING ERROR [None]
  - RENAL IMPAIRMENT [None]
